FAERS Safety Report 17363254 (Version 3)
Quarter: 2020Q2

REPORT INFORMATION
  Report Type: Spontaneous
  Country: US (occurrence: US)
  Receive Date: 20200203
  Receipt Date: 20200617
  Transmission Date: 20200713
  Serious: Yes (Hospitalization)
  Sender: FDA-Public Use
  Company Number: US-PFIZER INC-2019420086

PATIENT
  Age: 75 Year
  Sex: Male
  Weight: 113.4 kg

DRUGS (15)
  1. BIOTENE [GLUCOSE OXIDASE;LACTOPEROXIDASE] [Concomitant]
     Indication: DRY MOUTH
     Dosage: UNK, AS NEEDED (2 X DAILY IF NEEDED FOR DRY MOUTH)
  2. VYNDAQEL [Suspect]
     Active Substance: TAFAMIDIS MEGLUMINE
     Indication: CARDIAC AMYLOIDOSIS
     Dosage: 80 MG (FOUR-20 MG), DAILY
     Route: 048
     Dates: start: 20190826, end: 201910
  3. VYNDAQEL [Suspect]
     Active Substance: TAFAMIDIS MEGLUMINE
     Dosage: 20 MG, DAILY
     Route: 048
     Dates: start: 20191125
  4. SPIRONOLACTONE. [Concomitant]
     Active Substance: SPIRONOLACTONE
     Dosage: 37.5 MG, DAILY (1 1/2 TABLET DAILY)
  5. SYNTHROID [Concomitant]
     Active Substance: LEVOTHYROXINE SODIUM
     Indication: THYROID DISORDER
     Dosage: 175 UG, DAILY
  6. ALFUZOSIN HCL [Concomitant]
     Active Substance: ALFUZOSIN HYDROCHLORIDE
     Dosage: 10 MG, DAILY
  7. BUMEX [Concomitant]
     Active Substance: BUMETANIDE
     Dosage: 1 MG, DAILY(1 TABLET DAILY (ON MON, WED, FRI ADD 1 ADDITIONAL DOSE-TOTAL 2MG))
  8. METOPROLOL. [Concomitant]
     Active Substance: METOPROLOL
     Indication: HYPERTENSION
     Dosage: 75 MG, DAILY (1 1/2  TABLET)
  9. WARFARIN [Concomitant]
     Active Substance: WARFARIN
     Dosage: 5 MG, 1X/DAY
  10. TESTOSTERONE CYPIONATE. [Concomitant]
     Active Substance: TESTOSTERONE CYPIONATE
     Dosage: 1 ML (EVERY 21 DAYS )
     Route: 030
     Dates: end: 20200604
  11. VITAMIN C [Concomitant]
     Active Substance: ASCORBIC ACID
     Dosage: 500 MG, DAILY
  12. MELATONIN [Concomitant]
     Active Substance: MELATONIN
     Dosage: 3 MG, DAILY
  13. VITAMIN D [COLECALCIFEROL] [Concomitant]
     Active Substance: CHOLECALCIFEROL
     Dosage: 2000 MG, DAILY
  14. TYLENOL [Concomitant]
     Active Substance: ACETAMINOPHEN
     Indication: PAIN
     Dosage: 525 MG, AS NEEDED (2 TABLETS EVERY 6 HOURS AS NEEDED FOR PAIN)
  15. VYNDAQEL [Suspect]
     Active Substance: TAFAMIDIS MEGLUMINE
     Dosage: 80 MG (FOUR-20 MG), DAILY
     Route: 048
     Dates: start: 20191101, end: 20191125

REACTIONS (2)
  - Fall [Unknown]
  - Dysphonia [Recovering/Resolving]

NARRATIVE: CASE EVENT DATE: 201909
